APPROVED DRUG PRODUCT: COLD CAPSULE V
Active Ingredient: CHLORPHENIRAMINE MALEATE; PHENYLPROPANOLAMINE HYDROCHLORIDE
Strength: 8MG;75MG
Dosage Form/Route: CAPSULE, EXTENDED RELEASE;ORAL
Application: N018794 | Product #001
Applicant: DM GRAHAM LABORATORIES INC
Approved: Apr 23, 1985 | RLD: No | RS: No | Type: DISCN